FAERS Safety Report 9922573 (Version 1)
Quarter: 2014Q1

REPORT INFORMATION
  Report Type: Report from Study
  Country: US (occurrence: US)
  Receive Date: 20140225
  Receipt Date: 20140225
  Transmission Date: 20141002
  Serious: Yes (Other)
  Sender: FDA-Public Use
  Company Number: US-ABBVIE-14P-163-1203328-00

PATIENT
  Age: 60 Year
  Sex: Female
  Weight: 108.05 kg

DRUGS (15)
  1. HUMIRA [Suspect]
     Indication: RHEUMATOID ARTHRITIS
     Dates: start: 2012, end: 201402
  2. ASPIRIN [Concomitant]
     Indication: CARDIOVASCULAR EVENT PROPHYLAXIS
  3. TRAMADOL [Concomitant]
     Indication: RHEUMATOID ARTHRITIS
  4. POTASSIUM [Concomitant]
     Indication: BLOOD POTASSIUM DECREASED
  5. FUROSEMIDE [Concomitant]
     Indication: DIURETIC THERAPY
  6. ESTRADIOL [Concomitant]
     Indication: HORMONE REPLACEMENT THERAPY
  7. CRESTOR [Concomitant]
     Indication: BLOOD CHOLESTEROL
  8. NABUMETONE [Concomitant]
     Indication: RHEUMATOID ARTHRITIS
  9. VITAMIN D3 [Concomitant]
     Indication: VITAMIN SUPPLEMENTATION
  10. CITALOPRAM [Concomitant]
     Indication: DEPRESSION
  11. NEXIUM [Concomitant]
     Indication: GASTROOESOPHAGEAL REFLUX DISEASE
  12. ALLOPURINOL [Concomitant]
     Indication: GOUT
  13. TRAZADONE [Concomitant]
     Indication: INSOMNIA
  14. METHOTREXATE [Concomitant]
     Indication: RHEUMATOID ARTHRITIS
  15. FOLIC ACID [Concomitant]
     Indication: VITAMIN SUPPLEMENTATION

REACTIONS (2)
  - Inflammation [Recovering/Resolving]
  - Impaired healing [Recovering/Resolving]
